FAERS Safety Report 12693866 (Version 1)
Quarter: 2016Q3

REPORT INFORMATION
  Report Type: Spontaneous
  Country: US (occurrence: US)
  Receive Date: 20160829
  Receipt Date: 20160829
  Transmission Date: 20161109
  Serious: Yes (Other)
  Sender: FDA-Public Use
  Company Number: US-PFIZER INC-2016396288

PATIENT
  Age: 68 Year
  Sex: Male
  Weight: 112 kg

DRUGS (2)
  1. MORPHINE SULFATE. [Suspect]
     Active Substance: MORPHINE SULFATE
     Indication: DYSPNOEA
     Dosage: 2 MG, UNK (Q 15 MIN)
     Route: 042
  2. ATIVAN [Suspect]
     Active Substance: LORAZEPAM
     Indication: ANXIETY
     Dosage: 1 MG, UNK (Q 30 MIN)
     Route: 042

REACTIONS (5)
  - Agitation [Unknown]
  - Mental status changes [Unknown]
  - Product use issue [Unknown]
  - Confusional state [Unknown]
  - Delirium [Unknown]
